FAERS Safety Report 10270665 (Version 1)
Quarter: 2014Q3

REPORT INFORMATION
  Report Type: Spontaneous
  Country: IT (occurrence: IT)
  Receive Date: 20140701
  Receipt Date: 20140701
  Transmission Date: 20150326
  Serious: Yes (Other)
  Sender: FDA-Public Use
  Company Number: IT-PFIZER INC-2014176399

PATIENT
  Age: 7 Month
  Sex: Female

DRUGS (3)
  1. SILDENAFIL CITRATE. [Suspect]
     Active Substance: SILDENAFIL CITRATE
     Indication: CHYLOTHORAX
     Dosage: 0.2 MG/KG, 3X/DAY
     Route: 048
  2. AMIKACIN [Concomitant]
     Active Substance: AMIKACIN
     Indication: ESCHERICHIA SEPSIS
     Dosage: UNK
  3. VANCOMYCIN [Concomitant]
     Active Substance: VANCOMYCIN
     Indication: ESCHERICHIA SEPSIS
     Dosage: UNK

REACTIONS (3)
  - Off label use [Recovered/Resolved]
  - Blindness [Recovering/Resolving]
  - Optic ischaemic neuropathy [Recovering/Resolving]
